FAERS Safety Report 7468571-9 (Version None)
Quarter: 2011Q2

REPORT INFORMATION
  Report Type: 
  Country: None (occurrence: None)
  Receive Date: 20110509
  Receipt Date: 20110406
  Transmission Date: 20111010
  Serious: Yes (Other)
  Sender: FDA-Public Use
  Company Number: US-BAYER-2011-030519

PATIENT
  Sex: Female

DRUGS (6)
  1. OPTIMARK [Suspect]
     Indication: ANGIOGRAM
  2. OMNISCAN [Suspect]
     Indication: NUCLEAR MAGNETIC RESONANCE IMAGING
  3. OMNISCAN [Suspect]
     Indication: ANGIOGRAM
  4. MAGNEVIST [Suspect]
     Indication: ANGIOGRAM
  5. OPTIMARK [Suspect]
     Indication: NUCLEAR MAGNETIC RESONANCE IMAGING
  6. MAGNEVIST [Suspect]
     Indication: NUCLEAR MAGNETIC RESONANCE IMAGING

REACTIONS (2)
  - PAIN [None]
  - NEPHROGENIC SYSTEMIC FIBROSIS [None]
